FAERS Safety Report 6881858-3 (Version None)
Quarter: 2010Q3

REPORT INFORMATION
  Report Type: 
  Country: None (occurrence: None)
  Receive Date: 20100728
  Receipt Date: 20100728
  Transmission Date: 20110219
  Serious: Yes (Other)
  Sender: FDA-Public Use
  Company Number: None

PATIENT
  Sex: Male
  Weight: 61.2356 kg

DRUGS (2)
  1. RAMIPRIL [Suspect]
     Indication: HYPERTENSION
     Dosage: 10MG QD PO
     Route: 048
     Dates: start: 20090101
  2. LISINOPRIL [Suspect]
     Dosage: 20MG QD PO
     Route: 048

REACTIONS (5)
  - COUGH [None]
  - DIVERTICULUM [None]
  - HEADACHE [None]
  - HYPERTENSION [None]
  - PROSTATITIS [None]
